FAERS Safety Report 16152161 (Version 1)
Quarter: 2019Q2

REPORT INFORMATION
  Report Type: Spontaneous
  Country: DE (occurrence: DE)
  Receive Date: 20190403
  Receipt Date: 20190403
  Transmission Date: 20190711
  Serious: Yes (Other)
  Sender: FDA-Public Use
  Company Number: PHHY2019DE069594

PATIENT
  Age: 10 Year
  Sex: Female

DRUGS (2)
  1. ADALIMUMAB [Suspect]
     Active Substance: ADALIMUMAB
     Indication: PRODUCT USED FOR UNKNOWN INDICATION
     Dosage: 40 MG, UNK
     Route: 058
  2. ADALIMUMAB [Suspect]
     Active Substance: ADALIMUMAB
     Dosage: 20 MG, UNK
     Route: 058
     Dates: start: 20150402

REACTIONS (10)
  - Rheumatic disorder [Unknown]
  - Uveitis [Recovered/Resolved]
  - Fatigue [Not Recovered/Not Resolved]
  - Cataract [Recovered/Resolved]
  - Arthritis [Not Recovered/Not Resolved]
  - Apathy [Not Recovered/Not Resolved]
  - Listless [Not Recovered/Not Resolved]
  - Iritis [Unknown]
  - Cataract [Unknown]
  - Juvenile idiopathic arthritis [Not Recovered/Not Resolved]

NARRATIVE: CASE EVENT DATE: 20181015
